FAERS Safety Report 7424635-7 (Version None)
Quarter: 2011Q2

REPORT INFORMATION
  Report Type: 
  Country: None (occurrence: None)
  Receive Date: 20110419
  Receipt Date: 20110414
  Transmission Date: 20111010
  Serious: Yes (Other)
  Sender: FDA-Public Use
  Company Number: CA-PFIZER INC-2011037590

PATIENT
  Age: 71 Year
  Sex: Male
  Weight: 88.435 kg

DRUGS (2)
  1. FLOMAX [Suspect]
     Indication: BENIGN PROSTATIC HYPERPLASIA
     Dosage: 0.4 MG, 1X/DAY
     Route: 048
     Dates: start: 20101119, end: 20110215
  2. DILANTIN [Suspect]
     Indication: CONVULSION
     Dosage: 2 X100 MG, 2X/DAY
     Route: 048
     Dates: start: 20040101

REACTIONS (2)
  - DRUG LEVEL INCREASED [None]
  - DRUG INTERACTION [None]
